FAERS Safety Report 23531836 (Version 6)
Quarter: 2024Q2

REPORT INFORMATION
  Report Type: Other
  Country: CZ (occurrence: None)
  Receive Date: 20240216
  Receipt Date: 20240523
  Transmission Date: 20240716
  Serious: Yes (Hospitalization)
  Sender: FDA-Public Use
  Company Number: CZ-ROCHE-3508151

PATIENT
  Age: 10 Year
  Sex: Female
  Weight: 30 kg

DRUGS (6)
  1. GLOFITAMAB [Suspect]
     Active Substance: GLOFITAMAB
     Indication: Burkitt^s lymphoma
     Dosage: 4 HOUR INFUSION
     Route: 042
     Dates: start: 20240207, end: 20240207
  2. GLOFITAMAB [Suspect]
     Active Substance: GLOFITAMAB
     Dosage: AS 4 HOUR INFUSION
     Route: 042
     Dates: start: 20240214, end: 20240214
  3. GLOFITAMAB [Suspect]
     Active Substance: GLOFITAMAB
     Dosage: 4 HOUR INFUSION
     Route: 042
     Dates: start: 20240221, end: 20240221
  4. GLOFITAMAB [Suspect]
     Active Substance: GLOFITAMAB
     Route: 042
     Dates: start: 20240313, end: 20240313
  5. OBINUTUZUMAB [Suspect]
     Active Substance: OBINUTUZUMAB
     Indication: Burkitt^s lymphoma
     Route: 042
     Dates: start: 20240131, end: 20240131
  6. OBINUTUZUMAB [Suspect]
     Active Substance: OBINUTUZUMAB
     Route: 042
     Dates: start: 20240201, end: 20240201

REACTIONS (2)
  - Cytokine release syndrome [Recovered/Resolved]
  - Off label use [Unknown]

NARRATIVE: CASE EVENT DATE: 20240208
